FAERS Safety Report 24765453 (Version 1)
Quarter: 2024Q4

REPORT INFORMATION
  Report Type: Spontaneous
  Country: FR (occurrence: FR)
  Receive Date: 20241223
  Receipt Date: 20241223
  Transmission Date: 20250115
  Serious: Yes (Death)
  Sender: ACCORD
  Company Number: None

PATIENT
  Age: 79 Year
  Sex: Male
  Weight: 95 kg

DRUGS (3)
  1. QUETIAPINE [Suspect]
     Active Substance: QUETIAPINE
     Indication: Behaviour disorder
     Dosage: LP 300 MG, PROLONGED RELEASE TABLET
     Dates: start: 202407, end: 202408
  2. RISPERDAL [Suspect]
     Active Substance: RISPERIDONE
     Indication: Behaviour disorder
     Dosage: 1 MG, SCORED FILM-COATED TABLET
     Dates: start: 20240725, end: 202408
  3. OXAZEPAM [Suspect]
     Active Substance: OXAZEPAM
     Indication: Behaviour disorder
     Dosage: 50 MG, SCORED TABLET
     Dates: start: 202407, end: 202408

REACTIONS (3)
  - Dysphagia [Fatal]
  - General physical health deterioration [Fatal]
  - Acute kidney injury [Fatal]

NARRATIVE: CASE EVENT DATE: 20240801
